FAERS Safety Report 12726842 (Version 1)
Quarter: 2016Q3

REPORT INFORMATION
  Report Type: Report from Study
  Country: US (occurrence: US)
  Receive Date: 20160908
  Receipt Date: 20160908
  Transmission Date: 20161109
  Serious: Yes (Hospitalization)
  Sender: FDA-Public Use
  Company Number: US-BEH-2016073296

PATIENT
  Age: 50 Year
  Sex: Female
  Weight: 56.69 kg

DRUGS (1)
  1. ZEMAIRA [Suspect]
     Active Substance: .ALPHA.1-PROTEINASE INHIBITOR HUMAN
     Indication: ALPHA-1 ANTI-TRYPSIN DEFICIENCY
     Dosage: UNK, QMT
     Route: 042

REACTIONS (3)
  - Back pain [Recovered/Resolved]
  - Vascular operation [Recovered/Resolved]
  - Coronary artery occlusion [Recovered/Resolved]
